FAERS Safety Report 5278613-7 (Version None)
Quarter: 2007Q1

REPORT INFORMATION
  Report Type: 
  Country: None (occurrence: None)
  Receive Date: 20070328
  Receipt Date: 20070319
  Transmission Date: 20070707
  Serious: Yes (Other)
  Sender: FDA-Public Use
  Company Number: FR-GLAXOSMITHKLINE-B0463352A

PATIENT
  Sex: Female

DRUGS (1)
  1. VALACYCLOVIR HCL [Suspect]
     Indication: ANTIVIRAL PROPHYLAXIS
     Dosage: 1TAB FOUR TIMES PER DAY
     Route: 048

REACTIONS (3)
  - ERYTHEMA MULTIFORME [None]
  - PRESCRIBED OVERDOSE [None]
  - VASCULITIS [None]
